FAERS Safety Report 6635703-1 (Version None)
Quarter: 2010Q1

REPORT INFORMATION
  Report Type: 
  Country: None (occurrence: None)
  Receive Date: 20100312
  Receipt Date: 20100312
  Transmission Date: 20100710
  Serious: Yes (Hospitalization)
  Sender: FDA-Public Use
  Company Number: None

PATIENT
  Age: 64 Year
  Sex: Male

DRUGS (1)
  1. LIDOCAINE [Suspect]
     Indication: PULMONARY HYPERTENSION
     Dosage: 150 MG ONCE IV
     Route: 042
     Dates: start: 20100301, end: 20100301

REACTIONS (3)
  - BRADYCARDIA [None]
  - DYSPNOEA [None]
  - HYPOTENSION [None]
